FAERS Safety Report 8832275 (Version 1)
Quarter: 2012Q4

REPORT INFORMATION
  Report Type: 
  Country: CM (occurrence: CM)
  Receive Date: 20121009
  Receipt Date: 20121009
  Transmission Date: 20130627
  Serious: Yes (Hospitalization)
  Sender: FDA-Public Use
  Company Number: CM-009507513-1209CMR011906

PATIENT
  Age: 60 Year
  Sex: Male

DRUGS (2)
  1. MECTIZAN [Suspect]
     Indication: FILARIASIS LYMPHATIC
     Dosage: 4 DF, Once
     Route: 048
     Dates: start: 20120826
  2. ALBENDAZOLE [Suspect]
     Dosage: 1 DF, Once
     Route: 048
     Dates: start: 20120826, end: 20120826

REACTIONS (3)
  - Agitation [Recovered/Resolved]
  - Coma [Recovered/Resolved]
  - Speech disorder [Recovered/Resolved]
